FAERS Safety Report 10170998 (Version 1)
Quarter: 2014Q2

REPORT INFORMATION
  Report Type: Spontaneous
  Country: US (occurrence: None)
  Receive Date: 20140513
  Receipt Date: 20140513
  Transmission Date: 20141212
  Serious: Yes (Hospitalization)
  Sender: FDA-Public Use
  Company Number: None

PATIENT
  Age: 77 Year
  Sex: Male

DRUGS (4)
  1. EXJADE 500 MG NOVARTIS PHARMACEUTICALS COPRORATION [Suspect]
     Dosage: 2000 MG DAIL ORAL (DISSOLVE IN LIQUID)
     Route: 048
     Dates: start: 20130723
  2. CARDIZEM [Concomitant]
  3. METOPROLOL TARTRATE [Concomitant]
  4. POTASSIUM [Concomitant]

REACTIONS (1)
  - Diarrhoea [None]
